FAERS Safety Report 6125651-8 (Version None)
Quarter: 2009Q1

REPORT INFORMATION
  Report Type: 
  Country: None (occurrence: None)
  Receive Date: 20090320
  Receipt Date: 20090310
  Transmission Date: 20090719
  Serious: Yes (Hospitalization)
  Sender: FDA-Public Use
  Company Number: SK-ELI_LILLY_AND_COMPANY-SK200903003237

PATIENT
  Age: 15 Year
  Sex: Male

DRUGS (4)
  1. ZYPREXA [Suspect]
     Indication: SCHIZOPHRENIA
     Dosage: 12.5 MG, DAILY
     Route: 048
     Dates: start: 20081201, end: 20090308
  2. ZYPREXA [Suspect]
     Dosage: 150 MG, UNK
     Route: 048
     Dates: start: 20090309, end: 20090309
  3. ZYPREXA [Suspect]
     Dosage: 12.5 MG, DAILY (1/D)
     Route: 048
     Dates: start: 20090311
  4. FLUOXETINE [Concomitant]
     Indication: SCHIZOPHRENIA
     Route: 048

REACTIONS (5)
  - DYSARTHRIA [None]
  - OVERDOSE [None]
  - PSYCHOTIC DISORDER [None]
  - SOMNOLENCE [None]
  - SUICIDE ATTEMPT [None]
